FAERS Safety Report 18068649 (Version 1)
Quarter: 2020Q3

REPORT INFORMATION
  Report Type: Spontaneous
  Country: US (occurrence: US)
  Receive Date: 20200725
  Receipt Date: 20200725
  Transmission Date: 20201103
  Serious: Yes (Other)
  Sender: FDA-Public Use
  Company Number: US-AMGEN-USASP2020116503

PATIENT
  Age: 69 Year
  Sex: Female

DRUGS (1)
  1. PROLIA [Suspect]
     Active Substance: DENOSUMAB
     Indication: OSTEOPOROSIS
     Dosage: 60 MILLIGRAM, Q6MO
     Route: 058
     Dates: start: 2016

REACTIONS (5)
  - Foreign body in throat [Unknown]
  - Urinary incontinence [Unknown]
  - Muscle spasms [Not Recovered/Not Resolved]
  - Tooth extraction [Unknown]
  - Oral disorder [Unknown]

NARRATIVE: CASE EVENT DATE: 202007
